FAERS Safety Report 7380370-5 (Version None)
Quarter: 2011Q1

REPORT INFORMATION
  Report Type: 
  Country: None (occurrence: None)
  Receive Date: 20110329
  Receipt Date: 20110322
  Transmission Date: 20110831
  Serious: Yes (Death)
  Sender: FDA-Public Use
  Company Number: US-ROCHE-738949

PATIENT
  Sex: Female

DRUGS (1)
  1. XELODA [Suspect]
     Route: 065
     Dates: start: 20090101

REACTIONS (1)
  - ANAPHYLACTIC SHOCK [None]
